FAERS Safety Report 12565846 (Version 2)
Quarter: 2016Q4

REPORT INFORMATION
  Report Type: Report from Study
  Country: BR (occurrence: BR)
  Receive Date: 20160718
  Receipt Date: 20161017
  Transmission Date: 20170207
  Serious: Yes (Other)
  Sender: FDA-Public Use
  Company Number: PHHY2016BR091107

PATIENT
  Age: 45 Year
  Sex: Female
  Weight: 66 kg

DRUGS (6)
  1. PREBICTAL [Suspect]
     Active Substance: PREGABALIN
     Indication: PAIN
     Dosage: 50 MG, UNK
     Route: 065
     Dates: start: 20160615
  2. GILENYA [Suspect]
     Active Substance: FINGOLIMOD HYDROCHLORIDE
     Indication: RELAPSING-REMITTING MULTIPLE SCLEROSIS
     Dosage: 0.5 MG, QD
     Route: 048
     Dates: start: 201510, end: 20160615
  3. GILENYA [Suspect]
     Active Substance: FINGOLIMOD HYDROCHLORIDE
     Dosage: 0.5 MG, QOD (EVERY 48 HOURS)
     Route: 048
  4. PREBICTAL [Suspect]
     Active Substance: PREGABALIN
     Dosage: 150 MG (2 DF, BID)
     Route: 048
     Dates: start: 20160711
  5. PAROXETINE. [Concomitant]
     Active Substance: PAROXETINE
     Indication: DEPRESSION
     Dosage: 20 MG, QD
     Route: 048
  6. INDERAL [Concomitant]
     Active Substance: PROPRANOLOL HYDROCHLORIDE
     Indication: TREMOR
     Dosage: 40 MG, (HALF TABLET IN MORNING AND IN THE AFTERNOON)
     Route: 048

REACTIONS (10)
  - Pain of skin [Recovering/Resolving]
  - Trigeminal neuralgia [Recovering/Resolving]
  - Visual impairment [Not Recovered/Not Resolved]
  - Eye swelling [Recovering/Resolving]
  - Herpes zoster [Recovering/Resolving]
  - Underdose [Unknown]
  - Papule [Recovering/Resolving]
  - Paraesthesia [Recovering/Resolving]
  - Blister [Recovering/Resolving]
  - Scar [Not Recovered/Not Resolved]

NARRATIVE: CASE EVENT DATE: 20160610
